FAERS Safety Report 7519138-5 (Version None)
Quarter: 2011Q2

REPORT INFORMATION
  Report Type: 
  Country: None (occurrence: None)
  Receive Date: 20110602
  Receipt Date: 20110519
  Transmission Date: 20111010
  Serious: Yes (Hospitalization, Other)
  Sender: FDA-Public Use
  Company Number: PHHY2011JP45811

PATIENT
  Age: 1 Year
  Sex: Male

DRUGS (4)
  1. CYCLOSPORINE [Suspect]
     Indication: APLASTIC ANAEMIA
     Dosage: 4 TO 12 MG/KG/DAY
     Dates: start: 20060705
  2. METHYLPREDNISOLONE [Concomitant]
     Dosage: 250 MG/DAY
     Dates: start: 20060318
  3. PREDNISOLONE [Concomitant]
     Dosage: 2 MG? KG ? DAY
     Dates: start: 20060318
  4. CYCLOSPORINE [Suspect]
     Dosage: 80 MG, UNK

REACTIONS (8)
  - APLASTIC ANAEMIA [None]
  - THROMBOCYTOPENIA [None]
  - NEUTROPHIL COUNT DECREASED [None]
  - INFLAMMATORY BOWEL DISEASE [None]
  - HYPERPLASIA [None]
  - DRUG INEFFECTIVE [None]
  - PYREXIA [None]
  - MEGAKARYOCYTES [None]
